FAERS Safety Report 7407643-1 (Version None)
Quarter: 2011Q2

REPORT INFORMATION
  Report Type: 
  Country: None (occurrence: None)
  Receive Date: 20110405
  Receipt Date: 20110321
  Transmission Date: 20111010
  Serious: Yes (Life-Threatening, Hospitalization)
  Sender: FDA-Public Use
  Company Number: 2011MA002670

PATIENT
  Age: 33 Year
  Sex: Female

DRUGS (3)
  1. NAPROXEN [Suspect]
     Indication: PAIN IN EXTREMITY
  2. PROPOXYPHENE HYDROCHLORIDE [Concomitant]
  3. ACETAMINOPHEN [Concomitant]

REACTIONS (20)
  - PULSE ABSENT [None]
  - DRY GANGRENE [None]
  - OEDEMA [None]
  - PAIN IN EXTREMITY [None]
  - HAEMOGLOBIN INCREASED [None]
  - FINGER AMPUTATION [None]
  - NECROSIS ISCHAEMIC [None]
  - RHABDOMYOLYSIS [None]
  - PERONEAL NERVE PALSY [None]
  - LEG AMPUTATION [None]
  - SENSORY LOSS [None]
  - ESCHERICHIA BACTERAEMIA [None]
  - LEUKOCYTOCLASTIC VASCULITIS [None]
  - BACTERAEMIA [None]
  - MONOCLONAL GAMMOPATHY [None]
  - CULTURE URINE POSITIVE [None]
  - CHEST PAIN [None]
  - ARTERIAL OCCLUSIVE DISEASE [None]
  - BLOOD CULTURE POSITIVE [None]
  - MYOGLOBIN BLOOD INCREASED [None]
